FAERS Safety Report 7767588-4 (Version None)
Quarter: 2011Q3

REPORT INFORMATION
  Report Type: 
  Country: None (occurrence: None)
  Receive Date: 20110922
  Receipt Date: 20110913
  Transmission Date: 20111222
  Serious: Yes (Hospitalization, Other)
  Sender: FDA-Public Use
  Company Number: US-BAYER-2011-020084

PATIENT
  Age: 26 Year
  Sex: Female
  Weight: 89 kg

DRUGS (8)
  1. YAZ [Suspect]
     Indication: DYSMENORRHOEA
  2. YASMIN [Suspect]
     Indication: ACNE
  3. YAZ [Suspect]
     Indication: CONTRACEPTION
     Dosage: UNK
     Route: 048
     Dates: start: 20060101, end: 20090101
  4. PAROXETENE [Concomitant]
     Indication: DEPRESSION
     Dosage: UNK
     Dates: start: 20040101
  5. YAZ [Suspect]
     Indication: ACNE
  6. YASMIN [Suspect]
     Indication: CONTRACEPTION
     Dosage: UNK
     Route: 048
     Dates: start: 20060101, end: 20090101
  7. YASMIN [Suspect]
     Indication: DYSMENORRHOEA
  8. ADVIL LIQUI-GELS [Concomitant]

REACTIONS (6)
  - CHOLECYSTITIS ACUTE [None]
  - CHOLELITHIASIS [None]
  - POST CHOLECYSTECTOMY SYNDROME [None]
  - CHOLECYSTECTOMY [None]
  - PAIN [None]
  - IRRITABLE BOWEL SYNDROME [None]
